FAERS Safety Report 5081725-4 (Version None)
Quarter: 2006Q3

REPORT INFORMATION
  Report Type: 
  Country: None (occurrence: None)
  Receive Date: 20060816
  Receipt Date: 20060710
  Transmission Date: 20061208
  Serious: Yes (Hospitalization)
  Sender: FDA-Public Use
  Company Number: US-ROCHE-454545

PATIENT
  Age: 63 Year
  Sex: Female
  Weight: 57.8 kg

DRUGS (7)
  1. CAPECITABINE [Suspect]
     Indication: BREAST CANCER
     Dosage: DAYS 1 TO 14
     Route: 048
     Dates: start: 20060608, end: 20060615
  2. CAPECITABINE [Suspect]
     Route: 048
     Dates: start: 20060629
  3. TAXOTERE [Suspect]
     Indication: BREAST CANCER
     Route: 042
     Dates: start: 20060608
  4. TAXOTERE [Suspect]
     Route: 042
     Dates: start: 20060629
  5. TAPAZOL [Concomitant]
     Dates: start: 20000615
  6. TUMS [Concomitant]
     Dates: start: 20030615
  7. ACETAMINOPHEN [Concomitant]
     Indication: PAIN
     Dosage: DOSING FREQUENCY :PRN
     Dates: start: 20060612, end: 20060617

REACTIONS (1)
  - FEBRILE NEUTROPENIA [None]
